FAERS Safety Report 7967450-8 (Version None)
Quarter: 2011Q4

REPORT INFORMATION
  Report Type: 
  Country: None (occurrence: None)
  Receive Date: 20111209
  Receipt Date: 20111130
  Transmission Date: 20120403
  Serious: Yes (Hospitalization)
  Sender: FDA-Public Use
  Company Number: JP-JNJFOC-20110312641

PATIENT
  Sex: Male
  Weight: 92 kg

DRUGS (10)
  1. REMICADE [Suspect]
     Indication: RHEUMATOID ARTHRITIS
     Route: 042
     Dates: start: 20101122
  2. LEVOFLOXACIN [Concomitant]
     Route: 048
     Dates: start: 20101221
  3. TIENAM [Concomitant]
     Route: 042
     Dates: start: 20101222
  4. CLARITHROMYCIN [Concomitant]
     Route: 048
     Dates: start: 20101229
  5. RHEUMATREX [Suspect]
     Indication: RHEUMATOID ARTHRITIS
     Route: 048
     Dates: start: 20090926, end: 20110105
  6. CHINESE MEDICATION [Concomitant]
     Dates: start: 20101229
  7. ACETAMINOPHEN [Concomitant]
     Dosage: 6PAC DAILY
     Route: 048
     Dates: start: 20101221
  8. MUCODYNE [Concomitant]
     Route: 048
     Dates: start: 20101221
  9. REMICADE [Suspect]
     Route: 042
     Dates: start: 20101206
  10. PERIACTIN [Concomitant]
     Route: 048
     Dates: start: 20101229

REACTIONS (4)
  - BRONCHOPLEURAL FISTULA [None]
  - PNEUMONIA [None]
  - INFECTIOUS PLEURAL EFFUSION [None]
  - BRONCHOPULMONARY ASPERGILLOSIS [None]
